FAERS Safety Report 13320180 (Version 4)
Quarter: 2017Q2

REPORT INFORMATION
  Report Type: Report from Study
  Country: US (occurrence: US)
  Receive Date: 20170309
  Receipt Date: 20170612
  Transmission Date: 20170830
  Serious: Yes (Hospitalization, Other)
  Sender: FDA-Public Use
  Company Number: US-AMGEN-USASL2017032629

PATIENT
  Age: 63 Year
  Sex: Male

DRUGS (8)
  1. COSENTYX [Suspect]
     Active Substance: SECUKINUMAB
     Indication: PRODUCT USED FOR UNKNOWN INDICATION
     Dosage: UNK
     Route: 065
  2. ENBREL [Suspect]
     Active Substance: ETANERCEPT
     Indication: PSORIATIC ARTHROPATHY
     Dosage: 5 UNK, UNK
     Route: 065
     Dates: start: 2000
  3. PREDNISONE. [Concomitant]
     Active Substance: PREDNISONE
     Dosage: 5 MG, UNK
     Route: 065
  4. SIMPONI [Suspect]
     Active Substance: GOLIMUMAB
     Indication: PRODUCT USED FOR UNKNOWN INDICATION
     Dosage: UNK
     Route: 065
  5. HUMIRA [Suspect]
     Active Substance: ADALIMUMAB
     Indication: PRODUCT USED FOR UNKNOWN INDICATION
     Dosage: UNK
     Route: 065
  6. PREDNISONE. [Concomitant]
     Active Substance: PREDNISONE
     Dosage: 7.5 MG, UNK
     Route: 065
  7. ENBREL [Suspect]
     Active Substance: ETANERCEPT
     Indication: PSORIASIS
     Dosage: 50 MG, QWK
     Route: 065
     Dates: start: 201611
  8. ENBREL [Suspect]
     Active Substance: ETANERCEPT
     Dosage: 50 MG, QWK
     Route: 065

REACTIONS (13)
  - Drug effect decreased [Unknown]
  - Viral upper respiratory tract infection [Recovering/Resolving]
  - Upper respiratory tract infection [Unknown]
  - Asthenia [Unknown]
  - Psoriasis [Recovering/Resolving]
  - Hospitalisation [Unknown]
  - Staphylococcal infection [Recovering/Resolving]
  - Sinus disorder [Not Recovered/Not Resolved]
  - Drug effect incomplete [Unknown]
  - Psoriatic arthropathy [Unknown]
  - Cellulitis staphylococcal [Unknown]
  - Platelet count decreased [Recovering/Resolving]
  - Fatigue [Unknown]
